FAERS Safety Report 8552544 (Version 3)
Quarter: 2012Q4

REPORT INFORMATION
  Report Type: 
  Country: JP (occurrence: JP)
  Receive Date: 20120508
  Receipt Date: 20121231
  Transmission Date: 20130627
  Serious: Yes (Hospitalization)
  Sender: FDA-Public Use
  Company Number: JP-JNJFOC-20120507222

PATIENT
  Age: 60 Year
  Sex: Female
  Weight: 40 kg

DRUGS (4)
  1. REMICADE [Suspect]
     Indication: RHEUMATOID ARTHRITIS
     Route: 042
  2. REMICADE [Suspect]
     Indication: RHEUMATOID ARTHRITIS
     Route: 042
  3. PREDNISONE [Suspect]
     Indication: RHEUMATOID ARTHRITIS
     Route: 065
  4. METHOTREXATE [Concomitant]
     Route: 065

REACTIONS (2)
  - Arthritis infective [Recovered/Resolved]
  - Candidiasis [Recovered/Resolved]
